FAERS Safety Report 5061368-9 (Version None)
Quarter: 2006Q3

REPORT INFORMATION
  Report Type: 
  Country: None (occurrence: None)
  Receive Date: 20060703
  Receipt Date: 20060402
  Transmission Date: 20061208
  Serious: No
  Sender: FDA-Public Use
  Company Number: 2006PV011325

PATIENT
  Age: 59 Year
  Sex: Female
  Weight: 87.9978 kg

DRUGS (4)
  1. SYMLIN [Suspect]
     Indication: DIABETES MELLITUS NON-INSULIN-DEPENDENT
     Dosage: 120 MCG;TID;SC
     Route: 058
     Dates: start: 20060326
  2. AVANDIA [Concomitant]
  3. HUMULIN N [Concomitant]
  4. GLUCOTROL XL [Concomitant]

REACTIONS (1)
  - BLOOD GLUCOSE INCREASED [None]
